FAERS Safety Report 13184790 (Version 2)
Quarter: 2017Q1

REPORT INFORMATION
  Report Type: Report from Study
  Country: CZ (occurrence: CZ)
  Receive Date: 20170203
  Receipt Date: 20170208
  Transmission Date: 20170428
  Serious: Yes (Death, Hospitalization)
  Sender: FDA-Public Use
  Company Number: PHHY2017CZ016612

PATIENT
  Sex: Male

DRUGS (2)
  1. GLIVEC [Suspect]
     Active Substance: IMATINIB MESYLATE
     Indication: CHRONIC MYELOID LEUKAEMIA
     Dosage: 400 MG, QD
     Route: 065
  2. FRAXIPARIN [Concomitant]
     Active Substance: NADROPARIN CALCIUM
     Indication: PRODUCT USED FOR UNKNOWN INDICATION
     Dosage: 0.4 ML, QD
     Route: 058

REACTIONS (4)
  - Cardiopulmonary failure [Fatal]
  - Pyrexia [Fatal]
  - General physical health deterioration [Fatal]
  - Circulatory collapse [Unknown]
